FAERS Safety Report 18550741 (Version 2)
Quarter: 2020Q4

REPORT INFORMATION
  Report Type: Spontaneous
  Country: US (occurrence: US)
  Receive Date: 20201126
  Receipt Date: 20201203
  Transmission Date: 20210114
  Serious: No
  Sender: FDA-Public Use
  Company Number: US-PFIZER INC-2020465631

PATIENT
  Age: 67 Year
  Sex: Male

DRUGS (1)
  1. ADVIL LIQUI-GELS [Suspect]
     Active Substance: IBUPROFEN
     Dosage: UNK
     Route: 048

REACTIONS (6)
  - Stomatitis [Unknown]
  - Vertigo [Unknown]
  - Wrong technique in product usage process [Unknown]
  - Oral pain [Unknown]
  - Product physical issue [Unknown]
  - Throat irritation [Unknown]

NARRATIVE: CASE EVENT DATE: 20201113
